FAERS Safety Report 16033423 (Version 1)
Quarter: 2019Q2

REPORT INFORMATION
  Report Type: Spontaneous
  Country: US (occurrence: US)
  Receive Date: 20190304
  Receipt Date: 20190304
  Transmission Date: 20190711
  Serious: No
  Sender: FDA-Public Use
  Company Number: None

PATIENT
  Age: 63 Year
  Sex: Female
  Weight: 76.5 kg

DRUGS (3)
  1. VITAMIN E [Concomitant]
     Active Substance: .ALPHA.-TOCOPHEROL
  2. CALCIUM [Concomitant]
     Active Substance: CALCIUM
  3. LOSARTAN POTASSIUM 100 MG TAB. IMPRINT: 115 + 100 WHITE OVAL [Suspect]
     Active Substance: LOSARTAN POTASSIUM
     Indication: HYPERTENSION
     Dosage: ?          QUANTITY:1 TABLET(S);?
     Route: 048
     Dates: start: 20190226, end: 20190301

REACTIONS (6)
  - Rash erythematous [None]
  - Product contamination [None]
  - Rash pruritic [None]
  - Fatigue [None]
  - Anger [None]
  - Discomfort [None]

NARRATIVE: CASE EVENT DATE: 20190226
